FAERS Safety Report 10033980 (Version 2)
Quarter: 2014Q1

REPORT INFORMATION
  Report Type: Spontaneous
  Country: GB (occurrence: None)
  Receive Date: 20140320
  Receipt Date: 20140328
  Transmission Date: 20141002
  Serious: Yes (Other)
  Sender: FDA-Public Use
  Company Number: AUR-APL-2014-02846

PATIENT
  Age: 68 Year
  Sex: Male
  Weight: 88.9 kg

DRUGS (8)
  1. RAMIPRIL (RAMIPRIL) [Suspect]
     Indication: HYPERTENSION
     Route: 048
  2. AMLODIPINE (AMLODIPINE) [Concomitant]
  3. ARIPIPRAZOLE (ARIPIPRAZOLE) [Concomitant]
  4. DULOXETINE (DULOXETINE) (DULOXETINE) [Concomitant]
  5. LAMOTRIGINE (LAMOTRIGINE) [Concomitant]
  6. LOSARTAN (LOSARTAN) [Concomitant]
  7. MIRTAZAPINE (MIRTAZAPINE) [Concomitant]
  8. TAMSULOSIN (TAMSULOSIN) [Concomitant]

REACTIONS (2)
  - Cough [None]
  - Heart rate irregular [None]
